FAERS Safety Report 4617172-6 (Version None)
Quarter: 2005Q1

REPORT INFORMATION
  Report Type: 
  Country: None (occurrence: None)
  Receive Date: 20050323
  Receipt Date: 20050311
  Transmission Date: 20050727
  Serious: Yes (Death, Hospitalization)
  Sender: FDA-Public Use
  Company Number: FR-GLAXOSMITHKLINE-B0374581A

PATIENT
  Age: 91 Year
  Sex: Female

DRUGS (6)
  1. DEROXAT [Suspect]
     Indication: ILL-DEFINED DISORDER
     Dosage: 10MG PER DAY
     Route: 048
     Dates: end: 20050211
  2. KARDEGIC [Suspect]
     Dosage: 160MG PER DAY
     Route: 048
     Dates: end: 20050211
  3. PRACTAZIN [Concomitant]
     Dosage: 1UNIT PER DAY
     Route: 048
     Dates: end: 20050211
  4. LEVOTHYROX [Concomitant]
     Dosage: 75MCG PER DAY
     Route: 048
  5. PROPRANOLOL HYDROCHLORIDE [Concomitant]
     Dosage: 160MG PER DAY
     Route: 048
     Dates: end: 20050211
  6. LIPANTHYL [Concomitant]
     Dosage: 200MG PER DAY
     Route: 048
     Dates: end: 20050211

REACTIONS (10)
  - ABNORMAL BEHAVIOUR [None]
  - ARTHRALGIA [None]
  - CEREBRAL HAEMORRHAGE [None]
  - DISORIENTATION [None]
  - DISTURBANCE IN ATTENTION [None]
  - DRUG INTERACTION [None]
  - ECCHYMOSIS [None]
  - FALL [None]
  - HEAD INJURY [None]
  - MOTOR DYSFUNCTION [None]
